FAERS Safety Report 6376855-0 (Version None)
Quarter: 2009Q3

REPORT INFORMATION
  Report Type: 
  Country: None (occurrence: None)
  Receive Date: 20090925
  Receipt Date: 20090915
  Transmission Date: 20100115
  Serious: Yes (Other)
  Sender: FDA-Public Use
  Company Number: US-JNJFOC-20090904868

PATIENT
  Sex: Female
  Weight: 52.16 kg

DRUGS (5)
  1. REMICADE [Suspect]
     Indication: CROHN'S DISEASE
     Route: 042
  2. HUMIRA [Suspect]
     Route: 058
  3. HUMIRA [Suspect]
     Indication: CROHN'S DISEASE
     Route: 058
  4. MERCAPTOPURINE [Concomitant]
     Indication: CROHN'S DISEASE
  5. ALLOPURINOL [Concomitant]
     Indication: CROHN'S DISEASE

REACTIONS (4)
  - ARTHRITIS [None]
  - CONJUNCTIVITIS INFECTIVE [None]
  - FUNGAL INFECTION [None]
  - MOBILITY DECREASED [None]
